FAERS Safety Report 19904191 (Version 1)
Quarter: 2021Q3

REPORT INFORMATION
  Report Type: Not Available
  Country: None (occurrence: None)
  Receive Date: 20210930
  Receipt Date: 20210930
  Transmission Date: 20211014
  Serious: No
  Sender: FDA-Public Use
  Company Number: US-AKORN-171053

PATIENT
  Age: 68 Year
  Sex: Female

DRUGS (1)
  1. LEVOFLOXACIN ORAL SOLUTION [Suspect]
     Active Substance: LEVOFLOXACIN

REACTIONS (1)
  - Drug interaction [Not Recovered/Not Resolved]
